FAERS Safety Report 4527747-0 (Version None)
Quarter: 2004Q4

REPORT INFORMATION
  Report Type: 
  Country: None (occurrence: None)
  Receive Date: 20041123
  Receipt Date: 20040426
  Transmission Date: 20050328
  Serious: Yes (Other)
  Sender: FDA-Public Use
  Company Number: 2003033444

PATIENT
  Sex: Male
  Weight: 72.5755 kg

DRUGS (11)
  1. LIPITOR [Suspect]
     Indication: ILL-DEFINED DISORDER
     Dosage: 10 MG
     Dates: end: 20040426
  2. ROFECOXIB [Suspect]
     Indication: BACK DISORDER
     Dates: start: 20030622, end: 20030101
  3. HYDROCODONE (HYDROCODONE) [Suspect]
     Indication: BACK PAIN
     Dates: end: 20030501
  4. VICODIN [Suspect]
     Indication: BACK DISORDER
  5. APOREX (DEXTROPROPOXYPHENE HYDROCHLORIDE, PARACETAMOL) [Suspect]
     Indication: ILL-DEFINED DISORDER
     Dates: start: 20030101, end: 20030101
  6. TIZANIDINE HCL [Concomitant]
     Indication: ILL-DEFINED DISORDER
     Dates: start: 20030720, end: 20030725
  7. ONDANSETRON HCL [Concomitant]
  8. BUPROPION HYDROCHLORIDE [Concomitant]
  9. SERTRALINE HCL [Concomitant]
  10. IBUPROFEN [Concomitant]
  11. DIAZEPAM [Concomitant]

REACTIONS (18)
  - ABDOMINAL SYMPTOM [None]
  - ARTHRALGIA [None]
  - BACK PAIN [None]
  - BLOOD TRIGLYCERIDES INCREASED [None]
  - CONDITION AGGRAVATED [None]
  - CONSTIPATION [None]
  - DRUG INEFFECTIVE [None]
  - DYSURIA [None]
  - GASTROOESOPHAGEAL REFLUX DISEASE [None]
  - LOW DENSITY LIPOPROTEIN INCREASED [None]
  - MYALGIA [None]
  - MYOGLOBINURIA [None]
  - NAUSEA [None]
  - PAIN [None]
  - PAIN IN EXTREMITY [None]
  - RHABDOMYOLYSIS [None]
  - STOMACH DISCOMFORT [None]
  - VOMITING [None]
